FAERS Safety Report 6271358-6 (Version None)
Quarter: 2009Q3

REPORT INFORMATION
  Report Type: 
  Country: None (occurrence: None)
  Receive Date: 20090715
  Receipt Date: 20090715
  Transmission Date: 20100115
  Serious: Yes (Death, Hospitalization)
  Sender: FDA-Public Use
  Company Number: None

PATIENT

DRUGS (2)
  1. OPTIRAY 160 [Suspect]
     Indication: ANAPHYLACTIC REACTION
     Dates: start: 20090615, end: 20090615
  2. OPTIRAY 160 [Suspect]
     Indication: HYPOTENSION
     Dates: start: 20090615, end: 20090615

REACTIONS (5)
  - ANAPHYLACTIC SHOCK [None]
  - CONTRAST MEDIA REACTION [None]
  - DYSPNOEA [None]
  - ERYTHEMA [None]
  - URTICARIA [None]
